FAERS Safety Report 25890854 (Version 4)
Quarter: 2025Q4

REPORT INFORMATION
  Report Type: Spontaneous
  Country: US (occurrence: US)
  Receive Date: 20251007
  Receipt Date: 20251202
  Transmission Date: 20260117
  Serious: No
  Sender: Haleon PLC
  Company Number: US-HALEON-2266566

PATIENT
  Age: 56 Year
  Sex: Male

DRUGS (1)
  1. ADVIL [Suspect]
     Active Substance: IBUPROFEN
     Indication: Pain
     Dosage: 2 LIQUID-GELS
     Dates: start: 20250930, end: 20250930

REACTIONS (4)
  - Hypoaesthesia oral [Recovered/Resolved]
  - Product odour abnormal [Unknown]
  - Pharyngeal hypoaesthesia [Recovered/Resolved]
  - Product physical consistency issue [Unknown]

NARRATIVE: CASE EVENT DATE: 20250930
